FAERS Safety Report 4590327-5 (Version None)
Quarter: 2005Q1

REPORT INFORMATION
  Report Type: 
  Country: None (occurrence: None)
  Receive Date: 20050217
  Receipt Date: 20050209
  Transmission Date: 20050727
  Serious: Yes (Death)
  Sender: FDA-Public Use
  Company Number: CIP05000066

PATIENT
  Age: 74 Year
  Sex: Female
  Weight: 61.2 kg

DRUGS (11)
  1. ACTONEL [Suspect]
     Indication: OSTEOPOROSIS
     Dosage: 5 MG DAILY, ORAL
     Route: 048
     Dates: start: 20041111, end: 20041220
  2. ASPIRIN [Concomitant]
  3. PLAVIX [Concomitant]
  4. COREG [Concomitant]
  5. ALTACE [Concomitant]
  6. SPIRONOLACTONE [Concomitant]
  7. PRAVACHOL [Concomitant]
  8. MULTI-VIT (VITAMINS NOS) [Concomitant]
  9. CALCIUM CARBONATE W/MAGNESIUM (CALCIUM CARBONATE, MAGNESIUM) [Concomitant]
  10. HYLAND'S ARNICAID TABLETS (ARNICA MONTANA) [Concomitant]
  11. TYLENOL (CAPLET) [Concomitant]

REACTIONS (6)
  - BLOOD CALCIUM DECREASED [None]
  - BLOOD MAGNESIUM DECREASED [None]
  - CARDIAC ARREST [None]
  - CYSTITIS [None]
  - MEDICATION ERROR [None]
  - MYOCARDIAL INFARCTION [None]
